FAERS Safety Report 6764751-6 (Version None)
Quarter: 2010Q2

REPORT INFORMATION
  Report Type: 
  Country: None (occurrence: None)
  Receive Date: 20100610
  Receipt Date: 20100531
  Transmission Date: 20101027
  Serious: Yes (Other)
  Sender: FDA-Public Use
  Company Number: CA-ASTRAZENECA-2010SE25042

PATIENT
  Age: 26 Year
  Sex: Male
  Weight: 48.1 kg

DRUGS (1)
  1. LOSEC I.V. [Suspect]
     Route: 048

REACTIONS (3)
  - ARRHYTHMIA [None]
  - DRUG EFFECT DECREASED [None]
  - SUPRAVENTRICULAR TACHYCARDIA [None]
